FAERS Safety Report 9177593 (Version 2)
Quarter: 2012Q4

REPORT INFORMATION
  Report Type: 
  Country: US (occurrence: US)
  Receive Date: 20121001
  Receipt Date: 20121022
  Transmission Date: 20130627
  Serious: Yes (Other)
  Sender: FDA-Public Use
  Company Number: US-RB-033080-11

PATIENT
  Sex: Female

DRUGS (1)
  1. SUBOXONE FILM [Suspect]
     Indication: PRODUCT USED FOR UNKNOWN INDICATION
     Dosage: Film formulation. Being weaned off 2mg daily
     Route: 065
     Dates: start: 201102

REACTIONS (4)
  - Stillbirth [Recovered/Resolved]
  - Foetal cardiac disorder [Unknown]
  - Foetal chromosome abnormality [Unknown]
  - Exposure during pregnancy [Recovered/Resolved]
